FAERS Safety Report 23876051 (Version 1)
Quarter: 2024Q2

REPORT INFORMATION
  Report Type: Spontaneous
  Country: DE (occurrence: DE)
  Receive Date: 20240520
  Receipt Date: 20240520
  Transmission Date: 20240715
  Serious: Yes (Other)
  Sender: FDA-Public Use
  Company Number: DE-009507513-2405DEU004992

PATIENT
  Age: 49 Year
  Sex: Female

DRUGS (2)
  1. PEMBROLIZUMAB [Suspect]
     Active Substance: PEMBROLIZUMAB
     Indication: Ovarian cancer metastatic
     Dosage: 4 DOSES; EVERY 3 OR 4 WEEKS
     Dates: start: 201506, end: 201508
  2. PEMBROLIZUMAB [Suspect]
     Active Substance: PEMBROLIZUMAB
     Indication: Metastases to central nervous system

REACTIONS (2)
  - Tumour pseudoprogression [Unknown]
  - Off label use [Unknown]

NARRATIVE: CASE EVENT DATE: 20150601
